FAERS Safety Report 16178018 (Version 3)
Quarter: 2019Q2

REPORT INFORMATION
  Report Type: Report from Study
  Country: US (occurrence: US)
  Receive Date: 20190410
  Receipt Date: 20190423
  Transmission Date: 20190711
  Serious: Yes (Hospitalization)
  Sender: FDA-Public Use
  Company Number: US-BIOVITRUM-2019US0654

PATIENT
  Age: 2 Year
  Sex: Female
  Weight: 10.6 kg

DRUGS (7)
  1. PREDNISOLONE. [Concomitant]
     Active Substance: PREDNISOLONE
     Indication: DEFICIENCY OF THE INTERLEUKIN-1 RECEPTOR ANTAGONIST
     Route: 048
     Dates: start: 20080917
  2. KINERET [Suspect]
     Active Substance: ANAKINRA
     Dosage: WEIGHT = 7.74 KG
     Dates: start: 20100209
  3. PREDNISONE. [Concomitant]
     Active Substance: PREDNISONE
  4. IBUPROFEN. [Concomitant]
     Active Substance: IBUPROFEN
     Indication: PYREXIA
     Route: 048
  5. KINERET [Suspect]
     Active Substance: ANAKINRA
     Indication: DEFICIENCY OF THE INTERLEUKIN-1 RECEPTOR ANTAGONIST
     Route: 058
     Dates: start: 20100202
  6. KINERET [Suspect]
     Active Substance: ANAKINRA
     Dosage: 2.5 MG/KG/DAY
     Dates: start: 20100205
  7. KINERET [Suspect]
     Active Substance: ANAKINRA
     Dosage: 2 MG/KG/DAY (WEIGHT = 10.6 KG)
     Route: 058
     Dates: start: 20100202

REACTIONS (3)
  - Pyrexia [Recovered/Resolved]
  - Rhinorrhoea [Recovered/Resolved]
  - Rash [Recovered/Resolved]

NARRATIVE: CASE EVENT DATE: 20100715
